FAERS Safety Report 9311765 (Version 2)
Quarter: 2013Q2

REPORT INFORMATION
  Report Type: Spontaneous
  Country: FR (occurrence: FR)
  Receive Date: 20130528
  Receipt Date: 20130606
  Transmission Date: 20140414
  Serious: Yes (Hospitalization)
  Sender: FDA-Public Use
  Company Number: FR-009507513-1305FRA012189

PATIENT
  Age: 62 Year
  Sex: Female

DRUGS (12)
  1. NOXAFIL [Suspect]
     Dosage: UNK
     Route: 048
     Dates: start: 20130402, end: 20130412
  2. ZELITREX [Suspect]
     Dosage: UNK
     Route: 048
     Dates: start: 20130402, end: 20130412
  3. SPECIAFOLDINE [Suspect]
     Indication: ANAEMIA
     Dosage: UNK
     Route: 048
     Dates: start: 20130403, end: 20130405
  4. IDARUBICIN HYDROCHLORIDE [Suspect]
     Dosage: UNK
     Route: 042
     Dates: start: 20130404, end: 20130408
  5. ARACYTINE [Suspect]
     Dosage: UNK
     Route: 042
     Dates: start: 20130404, end: 20130410
  6. TRANXENE [Suspect]
     Indication: ANXIETY
     Dosage: UNK
     Dates: start: 20130406, end: 20130412
  7. ZOPHREN (ONDANSETRON) [Suspect]
     Indication: PRODUCT USED FOR UNKNOWN INDICATION
     Dosage: 1 DF, QD
     Route: 042
     Dates: start: 20130403, end: 20130411
  8. LASILIX [Concomitant]
     Dosage: UNK
     Route: 042
     Dates: start: 20130410
  9. INEXIUM [Concomitant]
     Dosage: UNK
     Route: 042
     Dates: start: 20130404
  10. PLITICAN [Concomitant]
     Dosage: UNK
     Route: 042
     Dates: start: 20130403
  11. TRIFLUCAN [Concomitant]
     Dosage: 400 MG, QD
     Route: 048
     Dates: start: 20130402, end: 20130406
  12. TRIFLUCAN [Concomitant]
     Dosage: UNK
     Route: 048
     Dates: start: 20130413

REACTIONS (1)
  - Rash maculo-papular [Recovered/Resolved]
